FAERS Safety Report 8268255-3 (Version None)
Quarter: 2012Q2

REPORT INFORMATION
  Report Type: 
  Country: None (occurrence: None)
  Receive Date: 20120409
  Receipt Date: 20120328
  Transmission Date: 20120825
  Serious: Yes (Other)
  Sender: FDA-Public Use
  Company Number: US-ELI_LILLY_AND_COMPANY-US201009005523

PATIENT
  Sex: Female

DRUGS (9)
  1. VITAMIN D [Concomitant]
     Dosage: 2000 IU, DAILY (1/D)
  2. FORTEO [Suspect]
     Indication: OSTEOPOROSIS
     Dosage: 20 UG, DAILY (1/D)
     Route: 058
     Dates: start: 20100805, end: 20100828
  3. FORTEO [Suspect]
     Dosage: 20 UG, DAILY (1/D)
     Route: 058
     Dates: start: 20100902, end: 20100910
  4. PROPRANOLOL [Concomitant]
     Dosage: UNK, 3/D
  5. CALCIUM CARBONATE [Concomitant]
  6. FORTEO [Suspect]
     Dosage: 20 UG, DAILY (1/D)
     Route: 058
     Dates: start: 20111118
  7. ASPIRIN [Concomitant]
  8. PROTONIX [Concomitant]
  9. GLUCOSAMINE [Concomitant]
     Route: 048

REACTIONS (8)
  - PALPITATIONS [None]
  - ASTHENIA [None]
  - ATRIAL FIBRILLATION [None]
  - MUSCULAR WEAKNESS [None]
  - DYSPNOEA [None]
  - ACTIVITIES OF DAILY LIVING IMPAIRED [None]
  - EXTRASYSTOLES [None]
  - ARTHRITIS [None]
